FAERS Safety Report 8507664-1 (Version None)
Quarter: 2012Q3

REPORT INFORMATION
  Report Type: 
  Country: None (occurrence: None)
  Receive Date: 20120713
  Receipt Date: 20120705
  Transmission Date: 20120928
  Serious: No
  Sender: FDA-Public Use
  Company Number: US-BIOGENIDEC-2012BI024459

PATIENT
  Sex: Female

DRUGS (1)
  1. TYSABRI [Suspect]
     Indication: MULTIPLE SCLEROSIS
     Route: 042
     Dates: start: 20090501

REACTIONS (5)
  - NEURALGIA [None]
  - DEFAECATION URGENCY [None]
  - STRESS [None]
  - MICTURITION URGENCY [None]
  - MULTIPLE SCLEROSIS [None]
